FAERS Safety Report 10977703 (Version 1)
Quarter: 2015Q1

REPORT INFORMATION
  Report Type: Spontaneous
  Country: ES (occurrence: None)
  Receive Date: 20150330
  Receipt Date: 20150330
  Transmission Date: 20150721
  Serious: Yes (Other)
  Sender: FDA-Public Use
  Company Number: FK201501470

PATIENT

DRUGS (3)
  1. OXALIPLATIN (OXALIPLATIN) [Suspect]
     Active Substance: OXALIPLATIN
     Indication: COLON CANCER STAGE III
  2. FLUOROURACIL (FLUOROURACIL) [Concomitant]
     Active Substance: FLUOROURACIL
  3. FOLINIC ACID (FOLINIC ACID) [Concomitant]
     Active Substance: LEUCOVORIN

REACTIONS (1)
  - Deep vein thrombosis [None]
